FAERS Safety Report 23478178 (Version 1)
Quarter: 2024Q1

REPORT INFORMATION
  Report Type: Spontaneous
  Country: LT (occurrence: LT)
  Receive Date: 20240204
  Receipt Date: 20240204
  Transmission Date: 20240410
  Serious: No
  Sender: FDA-Public Use
  Company Number: LT-IPSEN Group, Research and Development-2023-23309

PATIENT
  Age: 65 Year
  Sex: Male

DRUGS (2)
  1. CABOMETYX [Suspect]
     Active Substance: CABOZANTINIB S-MALATE
     Indication: Papillary renal cell carcinoma
     Dosage: 60 MG
     Route: 048
  2. CABOMETYX [Suspect]
     Active Substance: CABOZANTINIB S-MALATE
     Dosage: 40 MG
     Route: 048

REACTIONS (3)
  - Skin fissures [Unknown]
  - Asthenia [Unknown]
  - Dry skin [Unknown]
